FAERS Safety Report 8478452-X (Version None)
Quarter: 2012Q2

REPORT INFORMATION
  Report Type: 
  Country: None (occurrence: None)
  Receive Date: 20120629
  Receipt Date: 20120228
  Transmission Date: 20120825
  Serious: No
  Sender: FDA-Public Use
  Company Number: US-ABBOTT-12P-163-0905082-00

PATIENT
  Age: 33 Year
  Sex: Female

DRUGS (5)
  1. TRUVADA [Suspect]
     Indication: ANTIVIRAL TREATMENT
     Route: 065
     Dates: start: 20110214
  2. PREZISTA [Suspect]
     Indication: ANTIVIRAL TREATMENT
     Route: 048
     Dates: start: 20110214
  3. ISENTRESS [Suspect]
     Indication: ANTIVIRAL TREATMENT
     Route: 065
     Dates: start: 20110214
  4. NORVIR [Suspect]
     Indication: ANTIVIRAL TREATMENT
     Route: 065
     Dates: start: 20110725, end: 20110725
  5. RETROVIR [Suspect]
     Indication: ANTIVIRAL TREATMENT

REACTIONS (1)
  - ANAEMIA [None]
